FAERS Safety Report 14640020 (Version 1)
Quarter: 2018Q1

REPORT INFORMATION
  Report Type: Spontaneous
  Country: US (occurrence: US)
  Receive Date: 20180315
  Receipt Date: 20180315
  Transmission Date: 20180509
  Serious: Yes (Disabling)
  Sender: FDA-Public Use
  Company Number: US-ACTELION-A-NJ2016-147723

PATIENT
  Age: 80 Year
  Sex: Female

DRUGS (13)
  1. CLOPIDOGREL [Concomitant]
     Active Substance: CLOPIDOGREL BISULFATE
     Dosage: 75 MG, UNK
  2. CLONIDINE. [Concomitant]
     Active Substance: CLONIDINE
  3. LASIX [Concomitant]
     Active Substance: FUROSEMIDE
  4. BENZONATATE. [Concomitant]
     Active Substance: BENZONATATE
  5. WARFARIN [Concomitant]
     Active Substance: WARFARIN
  6. PREDNISONE. [Concomitant]
     Active Substance: PREDNISONE
  7. ALLOPURINOL. [Concomitant]
     Active Substance: ALLOPURINOL
  8. MELOXICAM. [Concomitant]
     Active Substance: MELOXICAM
  9. CLOTRIMAZOLE AND BETAMETHASONE [Concomitant]
     Active Substance: BETAMETHASONE\CLOTRIMAZOLE
  10. METOPROLOL. [Concomitant]
     Active Substance: METOPROLOL
     Dosage: 25 MG, UNK
  11. TRACLEER [Suspect]
     Active Substance: BOSENTAN
     Indication: PULMONARY HYPERTENSION
     Dosage: 125 MG, BID
     Route: 048
     Dates: start: 20161102
  12. REVATIO [Concomitant]
     Active Substance: SILDENAFIL CITRATE
  13. LISINOPRIL. [Concomitant]
     Active Substance: LISINOPRIL

REACTIONS (6)
  - Nasal congestion [Unknown]
  - Headache [Unknown]
  - Oedema [Unknown]
  - Condition aggravated [Unknown]
  - Oedema peripheral [Unknown]
  - Fluid retention [Unknown]
